FAERS Safety Report 13498743 (Version 1)
Quarter: 2017Q2

REPORT INFORMATION
  Report Type: Spontaneous
  Country: US (occurrence: US)
  Receive Date: 20170428
  Receipt Date: 20170428
  Transmission Date: 20170830
  Serious: Yes (Death)
  Sender: FDA-Public Use
  Company Number: None

PATIENT
  Age: 74 Year
  Sex: Male
  Weight: 126 kg

DRUGS (8)
  1. CARVEDILOL. [Concomitant]
     Active Substance: CARVEDILOL
  2. SENIOR MULTIVITAMIN [Concomitant]
  3. METFORMIN [Concomitant]
     Active Substance: METFORMIN HYDROCHLORIDE
  4. C-PAP MACHINE [Concomitant]
     Active Substance: DEVICE
  5. ASPIRIN. [Concomitant]
     Active Substance: ASPIRIN
  6. ENTRESTO [Suspect]
     Active Substance: SACUBITRIL\VALSARTAN
     Indication: CARDIOMYOPATHY
     Dosage: ?          QUANTITY:1 TABLET(S);?
     Route: 048
     Dates: start: 20160926, end: 20161014
  7. FUEROSEMIDE [Concomitant]
  8. ATORVASTATIN [Concomitant]
     Active Substance: ATORVASTATIN

REACTIONS (1)
  - Cardiac arrest [None]

NARRATIVE: CASE EVENT DATE: 20161014
